FAERS Safety Report 17838565 (Version 1)
Quarter: 2020Q2

REPORT INFORMATION
  Report Type: Spontaneous
  Country: CZ (occurrence: CZ)
  Receive Date: 20200528
  Receipt Date: 20200528
  Transmission Date: 20200714
  Serious: No
  Sender: FDA-Public Use
  Company Number: NVSC2020CZ088951

PATIENT
  Age: 3 Year
  Sex: Male

DRUGS (4)
  1. TERBINAFINE. [Suspect]
     Active Substance: TERBINAFINE
     Indication: TRICHOPHYTOSIS
     Dosage: 62.5 MG, QD
     Route: 048
  2. MUPIROCIN. [Suspect]
     Active Substance: MUPIROCIN
     Indication: SKIN LESION
  3. MUPIROCIN. [Suspect]
     Active Substance: MUPIROCIN
     Indication: BACTERIAL INFECTION
     Dosage: UNK (FOR SEVERAL WEEKS )
     Route: 061
  4. HYDROCORTISONE. [Suspect]
     Active Substance: HYDROCORTISONE
     Indication: GRANULOMA ANNULARE
     Dosage: UNK
     Route: 061

REACTIONS (11)
  - Skin plaque [Recovered/Resolved]
  - Skin lesion [Recovered/Resolved]
  - Skin exfoliation [Recovered/Resolved]
  - Fungal skin infection [Recovered/Resolved]
  - Drug intolerance [Unknown]
  - Dermatitis [Recovered/Resolved]
  - Trichophytosis [Recovered/Resolved]
  - Wrong technique in product usage process [Unknown]
  - Drug ineffective [Unknown]
  - Tinea infection [Recovered/Resolved]
  - Treatment failure [Unknown]
